FAERS Safety Report 21335933 (Version 1)
Quarter: 2022Q3

REPORT INFORMATION
  Report Type: Spontaneous
  Country: US (occurrence: US)
  Receive Date: 20220915
  Receipt Date: 20220915
  Transmission Date: 20221027
  Serious: Yes (Death, Other)
  Sender: FDA-Public Use
  Company Number: US-BRISTOL-MYERS SQUIBB COMPANY-2022-104821

PATIENT
  Age: 56 Year
  Sex: Female
  Weight: 70.31 kg

DRUGS (1)
  1. POMALYST [Suspect]
     Active Substance: POMALIDOMIDE
     Indication: Plasma cell myeloma
     Dosage: DAYS 1-21, EVERY 28 DAYS
     Route: 048
     Dates: start: 20220714

REACTIONS (1)
  - Death [Fatal]

NARRATIVE: CASE EVENT DATE: 20220727
